FAERS Safety Report 5842569-6 (Version None)
Quarter: 2008Q3

REPORT INFORMATION
  Report Type: 
  Country: None (occurrence: None)
  Receive Date: 20080808
  Receipt Date: 20080724
  Transmission Date: 20090109
  Serious: Yes (Other)
  Sender: FDA-Public Use
  Company Number: 031215

PATIENT
  Age: 47 Year
  Sex: Female

DRUGS (8)
  1. ADDERALL 10 [Suspect]
  2. XANAX [Suspect]
     Dosage: 2 MG, TID
  3. OXYCONTIN [Suspect]
     Dosage: 50 MG, BID
  4. ROXICODONE [Suspect]
     Dosage: 30 MG, QID
  5. SOMA [Suspect]
     Dosage: QID
  6. WELLBUTRIN [Suspect]
  7. ASPIRIN [Suspect]
  8. YASMIN [Suspect]

REACTIONS (2)
  - PYREXIA [None]
  - SUICIDAL IDEATION [None]
